FAERS Safety Report 7545761-8 (Version None)
Quarter: 2011Q2

REPORT INFORMATION
  Report Type: 
  Country: None (occurrence: None)
  Receive Date: 20110524
  Receipt Date: 20110208
  Transmission Date: 20111010
  Serious: No
  Sender: FDA-Public Use
  Company Number: 027166

PATIENT
  Sex: Female
  Weight: 70.3 kg

DRUGS (15)
  1. VITAMIN D [Concomitant]
  2. PROPRANOLOL [Concomitant]
  3. VICODIN [Concomitant]
  4. CIMZIA [Suspect]
     Indication: RHEUMATOID ARTHRITIS
     Dosage: (400 MG 1X/2 WEEKS, 2 SHOTS OF 200 MG EACH SUBCUTANEOUS)
     Route: 058
     Dates: start: 20110124
  5. CELEBREX [Concomitant]
  6. FOLIC ACID [Concomitant]
  7. MINOCIN [Concomitant]
  8. PRILOSEC [Concomitant]
  9. RELPAX [Concomitant]
  10. PLAQUENIL [Concomitant]
  11. FLEXERIL [Concomitant]
  12. PREDNISONE [Concomitant]
  13. ZOLOFT [Concomitant]
  14. NEURONTIN [Concomitant]
  15. ARAVA [Concomitant]

REACTIONS (1)
  - INJECTION SITE SWELLING [None]
